FAERS Safety Report 7474115-8 (Version None)
Quarter: 2011Q2

REPORT INFORMATION
  Report Type: 
  Country: None (occurrence: None)
  Receive Date: 20110511
  Receipt Date: 20110503
  Transmission Date: 20111010
  Serious: Yes (Hospitalization)
  Sender: FDA-Public Use
  Company Number: BR-GENENTECH-318177

PATIENT
  Sex: Female
  Weight: 83 kg

DRUGS (8)
  1. CALCIUM CARBONATE [Concomitant]
     Indication: OSTEOPOROSIS PROPHYLAXIS
     Dosage: UNK
     Route: 048
     Dates: start: 20060216
  2. RITUXAN [Suspect]
     Indication: RHEUMATOID ARTHRITIS
     Dosage: 1 G, Q14D
     Route: 042
     Dates: start: 20110401
  3. MELPHALAN HYDROCHLORIDE [Concomitant]
     Indication: RHEUMATOID ARTHRITIS
     Dosage: UNK
     Route: 048
     Dates: start: 20060216
  4. FOLIC ACID [Concomitant]
     Indication: ANAEMIA PROPHYLAXIS
     Dosage: 10 MG, 1/WEEK
     Route: 048
     Dates: start: 19961001
  5. METHOTREXATE [Concomitant]
     Indication: RHEUMATOID ARTHRITIS
     Dosage: 25 MG, 1/WEEK
     Route: 058
     Dates: start: 19961001
  6. IBUPROFEN [Concomitant]
     Indication: RHEUMATOID ARTHRITIS
     Dosage: UNK
     Route: 048
     Dates: start: 20060216
  7. ETHINYLOESTRADIOL/LEVONORGESTREL [Concomitant]
     Indication: PRODUCT USED FOR UNKNOWN INDICATION
     Dosage: UNK
     Route: 048
     Dates: start: 19911205
  8. VIT D [Concomitant]
     Indication: OSTEOPOROSIS PROPHYLAXIS
     Dosage: UNK
     Dates: start: 20060216

REACTIONS (1)
  - DEEP VEIN THROMBOSIS [None]
